FAERS Safety Report 10166550 (Version 1)
Quarter: 2014Q2

REPORT INFORMATION
  Report Type: Spontaneous
  Country: US (occurrence: US)
  Receive Date: 20140512
  Receipt Date: 20140512
  Transmission Date: 20141212
  Serious: No
  Sender: FDA-Public Use
  Company Number: US-B.I. PHARMACEUTICALS,INC./RIDGEFIELD-2014-BI-19830BP

PATIENT
  Age: 86 Year
  Sex: Female

DRUGS (6)
  1. PRADAXA [Suspect]
     Indication: ATRIAL FIBRILLATION
     Dosage: 300 MG
     Route: 048
     Dates: start: 2012
  2. LOSARTAN [Concomitant]
     Route: 048
  3. DIGOXIN [Concomitant]
     Route: 048
  4. AMLODIPINE [Concomitant]
     Route: 048
  5. LASIX [Concomitant]
     Route: 048
  6. LEVOTHYROXINE [Concomitant]
     Route: 048

REACTIONS (1)
  - Breast cyst [Not Recovered/Not Resolved]
